FAERS Safety Report 5796130-2 (Version None)
Quarter: 2008Q3

REPORT INFORMATION
  Report Type: 
  Country: None (occurrence: None)
  Receive Date: 20080701
  Receipt Date: 20080627
  Transmission Date: 20090109
  Serious: Yes (Other)
  Sender: FDA-Public Use
  Company Number: GB-TEVA-173539ISR

PATIENT
  Age: 80 Year
  Sex: Male
  Weight: 95 kg

DRUGS (4)
  1. DICLOFENAC SODIUM [Suspect]
     Indication: OSTEOARTHRITIS
     Route: 048
     Dates: start: 20071119, end: 20080114
  2. DICLOFENAC SODIUM [Suspect]
     Indication: BONE PAIN
  3. MELOXICAM [Suspect]
     Indication: OSTEOARTHRITIS
     Route: 048
     Dates: start: 20080116, end: 20080208
  4. MELOXICAM [Suspect]
     Indication: BONE PAIN

REACTIONS (2)
  - DIVERTICULUM [None]
  - RECTAL HAEMORRHAGE [None]
